FAERS Safety Report 7543315-0 (Version None)
Quarter: 2011Q2

REPORT INFORMATION
  Report Type: 
  Country: None (occurrence: None)
  Receive Date: 20110524
  Receipt Date: 20110301
  Transmission Date: 20111010
  Serious: No
  Sender: FDA-Public Use
  Company Number: 021535

PATIENT
  Sex: Male

DRUGS (4)
  1. CIMZIA [Suspect]
     Indication: CROHN'S DISEASE
     Dosage: 400 MG 1X/MONTH, SUBCUTANEOUS, 400 MG 1X/MONTH SUBCUTANEOUS, 400 MG 1X/MONTH SUBCUTANEOUS
     Route: 058
     Dates: start: 20091123
  2. CIMZIA [Suspect]
  3. CIMZIA [Suspect]
  4. ADVIL LIQUI-GELS [Suspect]

REACTIONS (4)
  - THROAT IRRITATION [None]
  - LIMB INJURY [None]
  - ASTHMA [None]
  - COLITIS [None]
